FAERS Safety Report 21530364 (Version 2)
Quarter: 2023Q2

REPORT INFORMATION
  Report Type: Report from Study
  Country: CA (occurrence: CA)
  Receive Date: 20221031
  Receipt Date: 20230530
  Transmission Date: 20230721
  Serious: Yes (Other)
  Sender: FDA-Public Use
  Company Number: CA-NOVARTISPH-NVSC2022CA243810

PATIENT
  Age: 63 Year
  Sex: Female

DRUGS (2)
  1. MAYZENT [Suspect]
     Active Substance: SIPONIMOD
     Indication: Secondary progressive multiple sclerosis
     Dosage: 2 MG
     Route: 048
     Dates: start: 20220803
  2. BOTOX [Concomitant]
     Active Substance: ONABOTULINUMTOXINA
     Indication: Tremor
     Dosage: UNK
     Route: 065

REACTIONS (7)
  - Cataract [Unknown]
  - Visual impairment [Unknown]
  - Migraine [Unknown]
  - Headache [Recovering/Resolving]
  - Eye infection viral [Unknown]
  - Viral infection [Unknown]
  - Fatigue [Unknown]
